FAERS Safety Report 6977893-7 (Version None)
Quarter: 2010Q3

REPORT INFORMATION
  Report Type: 
  Country: None (occurrence: None)
  Receive Date: 20100913
  Receipt Date: 20100901
  Transmission Date: 20110219
  Serious: Yes (Other)
  Sender: FDA-Public Use
  Company Number: US-SHIRE-ALL1-2010-04660

PATIENT
  Sex: Female
  Weight: 82.993 kg

DRUGS (1)
  1. FOSRENOL [Suspect]
     Indication: HYPERPHOSPHATAEMIA
     Dosage: 500 MG AFTER EACH MEAL AND SNACK
     Route: 048
     Dates: start: 20090101

REACTIONS (2)
  - CONSTIPATION [None]
  - RENAL FAILURE [None]
